FAERS Safety Report 4960381-7 (Version None)
Quarter: 2006Q2

REPORT INFORMATION
  Report Type: 
  Country: None (occurrence: None)
  Receive Date: 20060403
  Receipt Date: 20060105
  Transmission Date: 20061013
  Serious: Yes (Other)
  Sender: FDA-Public Use
  Company Number: PHNU2006DE00463

PATIENT
  Age: 26 Year
  Sex: Male

DRUGS (2)
  1. FORADIL [Suspect]
     Indication: ASTHMA
     Dosage: COMPLETE REMAINING AMOUNT
     Dates: start: 20060103, end: 20060103
  2. FORADIL [Suspect]
     Route: 048
     Dates: start: 20060103, end: 20060103

REACTIONS (11)
  - BLOOD PRESSURE INCREASED [None]
  - DIZZINESS [None]
  - ELECTROCARDIOGRAM ABNORMAL [None]
  - FATIGUE [None]
  - HEADACHE [None]
  - HEART RATE INCREASED [None]
  - INCORRECT ROUTE OF DRUG ADMINISTRATION [None]
  - NAUSEA [None]
  - OVERDOSE [None]
  - PALLOR [None]
  - TREMOR [None]
